FAERS Safety Report 7522415-5 (Version None)
Quarter: 2011Q2

REPORT INFORMATION
  Report Type: 
  Country: None (occurrence: None)
  Receive Date: 20110603
  Receipt Date: 20110520
  Transmission Date: 20111010
  Serious: Yes (Other)
  Sender: FDA-Public Use
  Company Number: US-BAYER-2011-043539

PATIENT
  Age: 36 Year
  Sex: Male
  Weight: 95 kg

DRUGS (1)
  1. ASPIRIN [Suspect]
     Indication: MYOSITIS
     Dosage: UNK, QD
     Route: 048
     Dates: start: 20110401, end: 20110420

REACTIONS (4)
  - ASTHMA [None]
  - CHEST PAIN [None]
  - GASTRIC HAEMORRHAGE [None]
  - MELAENA [None]
